FAERS Safety Report 23647128 (Version 1)
Quarter: 2024Q1

REPORT INFORMATION
  Report Type: Spontaneous
  Country: ES (occurrence: ES)
  Receive Date: 20240319
  Receipt Date: 20240319
  Transmission Date: 20240410
  Serious: Yes (Other)
  Sender: FDA-Public Use
  Company Number: None

PATIENT
  Age: 64 Year
  Sex: Male

DRUGS (4)
  1. NAPROXEN [Suspect]
     Active Substance: NAPROXEN
     Indication: Myalgia
     Dosage: NAPROXENO (2002A)
     Route: 048
     Dates: start: 20240115, end: 20240117
  2. VENTOLIN [Concomitant]
     Active Substance: ALBUTEROL SULFATE
     Indication: Product used for unknown indication
     Dosage: INHALATION SUSPENSION FOR INHALATION IN PRESSURE CONTAINER, 1 INHALER OF 200 DOSES
     Route: 065
     Dates: start: 20191028
  3. SILODOSIN [Concomitant]
     Active Substance: SILODOSIN
     Indication: Product used for unknown indication
     Dosage: 30 CAPSULES
     Route: 048
     Dates: start: 20170306
  4. BECLOMETHASONE DIPROPIONATE\FORMOTEROL FUMARATE\GLYCOPYRROLATE [Concomitant]
     Active Substance: BECLOMETHASONE DIPROPIONATE\FORMOTEROL FUMARATE\GLYCOPYRROLATE
     Indication: Product used for unknown indication
     Dosage: 87 MICROGRAMS/5 MICROGRAMS/9 MICROGRAMS SOLUTION FOR INHALATION IN PRESSURE CONTAINER, 1 INHALER ...
     Route: 065
     Dates: start: 20231009

REACTIONS (1)
  - Hypertensive crisis [Recovered/Resolved]

NARRATIVE: CASE EVENT DATE: 20240117
